FAERS Safety Report 10944430 (Version 1)
Quarter: 2015Q1

REPORT INFORMATION
  Report Type: Report from Study
  Country: IN (occurrence: IN)
  Receive Date: 20150323
  Receipt Date: 20150323
  Transmission Date: 20150721
  Serious: Yes (Death)
  Sender: FDA-Public Use
  Company Number: IN-ROCHE-1554427

PATIENT
  Age: 45 Year
  Sex: Male

DRUGS (1)
  1. EXXURA [Suspect]
     Active Substance: PEGINTERFERON ALFA-2A
     Indication: HEPATITIS C
     Dosage: 180MCG
     Route: 058
     Dates: start: 20140906, end: 20150221

REACTIONS (1)
  - Death [Fatal]

NARRATIVE: CASE EVENT DATE: 20150228
